FAERS Safety Report 7227417-4 (Version None)
Quarter: 2011Q1

REPORT INFORMATION
  Report Type: 
  Country: None (occurrence: None)
  Receive Date: 20110111
  Receipt Date: 20110111
  Transmission Date: 20110831
  Serious: Yes (Other)
  Sender: FDA-Public Use
  Company Number: None

PATIENT
  Age: 25 Year
  Sex: Female
  Weight: 70.3075 kg

DRUGS (1)
  1. LEVAQUIN [Suspect]
     Indication: SINUSITIS
     Dosage: 500MG 1X PO
     Route: 048
     Dates: start: 20100105, end: 20100107

REACTIONS (5)
  - MUSCULAR WEAKNESS [None]
  - MYALGIA [None]
  - PAIN IN JAW [None]
  - ANXIETY [None]
  - TREMOR [None]
